FAERS Safety Report 4801949-8 (Version None)
Quarter: 2005Q4

REPORT INFORMATION
  Report Type: 
  Country: None (occurrence: None)
  Receive Date: 20051018
  Receipt Date: 20051005
  Transmission Date: 20060501
  Serious: Yes (Death)
  Sender: FDA-Public Use
  Company Number: US-MERCK-0510USA04857

PATIENT
  Sex: Female

DRUGS (1)
  1. VIOXX [Suspect]
     Route: 048
     Dates: start: 19991021, end: 20030930

REACTIONS (3)
  - CORONARY ARTERY INSUFFICIENCY [None]
  - HYPERTENSIVE HEART DISEASE [None]
  - INJURY [None]
